FAERS Safety Report 6659888-6 (Version None)
Quarter: 2010Q2

REPORT INFORMATION
  Report Type: 
  Country: None (occurrence: None)
  Receive Date: 20100330
  Receipt Date: 20100330
  Transmission Date: 20101027
  Serious: No
  Sender: FDA-Public Use
  Company Number: None

PATIENT
  Age: 28 Year
  Sex: Male
  Weight: 77.1115 kg

DRUGS (1)
  1. PROPECIA [Suspect]
     Indication: ALOPECIA
     Dosage: 1.0 MG/DAY 1 PER DAY PO
     Route: 048
     Dates: start: 20070105, end: 20090718

REACTIONS (6)
  - BREAST ENLARGEMENT [None]
  - ERECTILE DYSFUNCTION [None]
  - LOSS OF LIBIDO [None]
  - ORGANIC ERECTILE DYSFUNCTION [None]
  - SEXUAL DYSFUNCTION [None]
  - WAIST CIRCUMFERENCE INCREASED [None]
